FAERS Safety Report 10238984 (Version 1)
Quarter: 2014Q2

REPORT INFORMATION
  Report Type: Report from Study
  Country: DK (occurrence: DK)
  Receive Date: 20140616
  Receipt Date: 20140616
  Transmission Date: 20141212
  Serious: Yes (Hospitalization)
  Sender: FDA-Public Use
  Company Number: DK-SA-2014SA076827

PATIENT
  Age: 22 Year
  Sex: Female
  Weight: 70 kg

DRUGS (1)
  1. LANTUS [Suspect]
     Indication: METABOLIC DISORDER
     Dosage: DOSE:15 UNIT(S)
     Route: 058
     Dates: start: 20140509

REACTIONS (1)
  - Abdominal pain [Unknown]
